FAERS Safety Report 9993324 (Version 3)
Quarter: 2014Q2

REPORT INFORMATION
  Report Type: Report from Study
  Country: NL (occurrence: NL)
  Receive Date: 20140310
  Receipt Date: 20140428
  Transmission Date: 20141212
  Serious: Yes (Death, Hospitalization, Other)
  Sender: FDA-Public Use
  Company Number: PHHY2014NL028566

PATIENT
  Age: 64 Year
  Sex: Female

DRUGS (6)
  1. SANDOSTATIN LAR [Suspect]
     Indication: NEUROENDOCRINE TUMOUR
     Dosage: 30 MG/ 2 ML, ONCE EVERY 3 WEEKS
     Route: 042
     Dates: start: 20100415, end: 20140228
  2. PARACETAMOL [Concomitant]
     Dosage: 1000 MG, 3X
  3. METOPROLOL RETARD GEA [Concomitant]
     Dosage: 100 MG, 1X
  4. LOPERAMIDE [Concomitant]
     Dosage: 2 MG, WHEN NEEDED
  5. PANTOZOL [Concomitant]
     Dosage: 40 MG, 1X
  6. SLOW K [Concomitant]
     Dosage: 600 MG, 3X

REACTIONS (6)
  - Duodenal perforation [Fatal]
  - Liver disorder [Unknown]
  - Malaise [Unknown]
  - Terminal state [Unknown]
  - Ascites [Recovering/Resolving]
  - Abdominal pain [Recovering/Resolving]
